FAERS Safety Report 23275919 (Version 1)
Quarter: 2023Q4

REPORT INFORMATION
  Report Type: Spontaneous
  Country: US (occurrence: US)
  Receive Date: 20231208
  Receipt Date: 20231208
  Transmission Date: 20240109
  Serious: Yes (Other)
  Sender: FDA-Public Use
  Company Number: US-ALIMERA SCIENCES INC.-US-A16013-23-000268

PATIENT
  Age: 38 Year
  Sex: Female

DRUGS (1)
  1. ILUVIEN [Suspect]
     Active Substance: FLUOCINOLONE ACETONIDE
     Indication: Diabetic retinal oedema
     Dosage: 0.25 MICROGRAM, QD - UNKNOWN EYE
     Route: 031

REACTIONS (3)
  - Glaucoma [Unknown]
  - Optic nerve cupping [Unknown]
  - Goniotomy [Unknown]
